FAERS Safety Report 18347550 (Version 1)
Quarter: 2020Q4

REPORT INFORMATION
  Report Type: Spontaneous
  Country: PL (occurrence: PL)
  Receive Date: 20201006
  Receipt Date: 20201006
  Transmission Date: 20210114
  Serious: Yes (Other)
  Sender: FDA-Public Use
  Company Number: PL-SUN PHARMACEUTICAL INDUSTRIES LTD-2020RR-262942

PATIENT
  Age: 58 Year
  Sex: Female

DRUGS (11)
  1. SULPIRIDE [Suspect]
     Active Substance: SULPIRIDE
     Indication: SCHIZOPHRENIA
     Dosage: 400 MG, QD
     Route: 065
  2. OXAZEPAM. [Suspect]
     Active Substance: OXAZEPAM
     Dosage: 50 MG, QD (SINCE WEEK 1)
     Route: 065
  3. ARIPIPRAZOLE. [Suspect]
     Active Substance: ARIPIPRAZOLE
     Indication: SCHIZOPHRENIA
     Dosage: 30 MG, QD (WEEK 1-2)
     Route: 065
  4. ARIPIPRAZOLE. [Suspect]
     Active Substance: ARIPIPRAZOLE
     Dosage: 7.5 MG, QD
     Route: 065
  5. OXAZEPAM. [Suspect]
     Active Substance: OXAZEPAM
     Indication: SCHIZOPHRENIA
     Dosage: 30 MG, QD
     Route: 065
  6. OXAZEPAM. [Suspect]
     Active Substance: OXAZEPAM
     Dosage: 40 MG, QD
     Route: 065
  7. MEMANTINE. [Suspect]
     Active Substance: MEMANTINE
     Indication: SCHIZOPHRENIA
     Dosage: 10 MG, QD (WEEK 1 TO 2)
     Route: 065
  8. TIAPRIDE [Suspect]
     Active Substance: TIAPRIDE
     Indication: SCHIZOPHRENIA
     Dosage: 50 MG, QD
     Route: 065
  9. OLANZAPINE. [Suspect]
     Active Substance: OLANZAPINE
     Indication: SCHIZOPHRENIA
     Dosage: 7.5 MG, QD (WEEK 2-4)
     Route: 065
  10. SULPIRIDE [Suspect]
     Active Substance: SULPIRIDE
     Dosage: 600 MG, QD (WEEK 1-3)
     Route: 065
  11. TIAPRIDE [Suspect]
     Active Substance: TIAPRIDE
     Dosage: 100 MG, QD
     Route: 065

REACTIONS (3)
  - Extrapyramidal disorder [Unknown]
  - Underdose [Unknown]
  - Delirium [Recovered/Resolved]
